FAERS Safety Report 4758066-5 (Version None)
Quarter: 2005Q3

REPORT INFORMATION
  Report Type: 
  Country: None (occurrence: None)
  Receive Date: 20050829
  Receipt Date: 20050818
  Transmission Date: 20060218
  Serious: Yes (Life-Threatening, Hospitalization)
  Sender: FDA-Public Use
  Company Number: HQWYE019119AUG05

PATIENT
  Age: 52 Year
  Sex: Male

DRUGS (10)
  1. RAPAMUNE [Suspect]
     Indication: IMMUNOSUPPRESSANT DRUG THERAPY
     Dosage: 2 MG 1X PER 1 DAY ORAL
     Route: 048
     Dates: start: 20050727, end: 20050815
  2. CLARITHROMYCIN [Suspect]
     Indication: PNEUMONIA
     Dosage: 500 MG 2X PER 1 DAY ORAL
     Route: 048
     Dates: start: 20050807, end: 20050815
  3. CYCLOSPORINE [Suspect]
     Dosage: SEE IMAGE
     Dates: start: 20050101, end: 20050801
  4. CYCLOSPORINE [Suspect]
     Dosage: SEE IMAGE
     Dates: start: 20050801, end: 20050801
  5. COTRIM [Concomitant]
  6. PREDNISONE [Concomitant]
  7. ZENAPAX [Concomitant]
  8. ISONIAZID [Concomitant]
  9. IRBESARTAN [Concomitant]
  10. CALCIUM CARBONATE (CALCIUM CARBONATE) [Concomitant]

REACTIONS (18)
  - ALANINE AMINOTRANSFERASE INCREASED [None]
  - BLOOD LACTATE DEHYDROGENASE INCREASED [None]
  - CARDIAC FAILURE [None]
  - DRUG LEVEL ABOVE THERAPEUTIC [None]
  - HAEMODIALYSIS [None]
  - HAEMOLYTIC URAEMIC SYNDROME [None]
  - IMMUNOSUPPRESSANT DRUG LEVEL INCREASED [None]
  - JAUNDICE [None]
  - NEPHROPATHY TOXIC [None]
  - NOSOCOMIAL INFECTION [None]
  - PNEUMONIA [None]
  - PROTHROMBIN TIME PROLONGED [None]
  - PULMONARY CONGESTION [None]
  - RENAL FAILURE ACUTE [None]
  - SINUS BRADYCARDIA [None]
  - THERAPEUTIC AGENT TOXICITY [None]
  - UPPER GASTROINTESTINAL HAEMORRHAGE [None]
  - URINARY TRACT INFECTION [None]
